FAERS Safety Report 5008899-5 (Version None)
Quarter: 2006Q2

REPORT INFORMATION
  Report Type: 
  Country: None (occurrence: None)
  Receive Date: 20060518
  Receipt Date: 20060515
  Transmission Date: 20061013
  Serious: Yes (Death, Other)
  Sender: FDA-Public Use
  Company Number: 2006-01168

PATIENT
  Age: 57 Year
  Sex: Male
  Weight: 79.8 kg

DRUGS (2)
  1. VELCADE [Suspect]
     Indication: SMALL CELL LUNG CANCER STAGE UNSPECIFIED
     Dosage: 1.60 MG/M2, INTRAVENOUS
     Route: 042
     Dates: start: 20060127, end: 20060505
  2. TOPOTECAN (TOPOTECAN) N/A [Suspect]
     Indication: SMALL CELL LUNG CANCER STAGE UNSPECIFIED
     Dosage: 3.00 MG/M2, INTRAVENOUS
     Route: 042
     Dates: start: 20060127, end: 20060505

REACTIONS (5)
  - ATRIOVENTRICULAR BLOCK [None]
  - CARDIAC ARREST [None]
  - CARDIO-RESPIRATORY ARREST [None]
  - CONDUCTION DISORDER [None]
  - DYSPNOEA [None]
